FAERS Safety Report 5920895-X (Version None)
Quarter: 2008Q4

REPORT INFORMATION
  Report Type: 
  Country: None (occurrence: None)
  Receive Date: 20081016
  Receipt Date: 20081006
  Transmission Date: 20090506
  Serious: Yes (Life-Threatening, Hospitalization, Disabling)
  Sender: FDA-Public Use
  Company Number: DE-ROCHE-590200

PATIENT
  Age: 59 Year
  Sex: Male
  Weight: 68 kg

DRUGS (1)
  1. LARIAM [Suspect]
     Route: 065
     Dates: start: 20080626

REACTIONS (3)
  - ACUTE RESPIRATORY FAILURE [None]
  - PULMONARY TOXICITY [None]
  - SHOCK [None]
